FAERS Safety Report 25414741 (Version 2)
Quarter: 2025Q3

REPORT INFORMATION
  Report Type: Spontaneous
  Country: GB (occurrence: GB)
  Receive Date: 20250609
  Receipt Date: 20250701
  Transmission Date: 20251020
  Serious: Yes (Congenital Anomaly, Other)
  Sender: ABBVIE
  Company Number: None

PATIENT
  Sex: Male
  Weight: 5 kg

DRUGS (1)
  1. CITALOPRAM [Suspect]
     Active Substance: CITALOPRAM
     Indication: Maternal exposure timing unspecified
     Route: 064

REACTIONS (5)
  - Pulmonary valve stenosis [Not Recovered/Not Resolved]
  - Congenital hypothyroidism [Not Recovered/Not Resolved]
  - Foetal exposure during pregnancy [Unknown]
  - Atrial septal defect [Unknown]
  - Ventricular septal defect [Unknown]
